FAERS Safety Report 7366513-8 (Version None)
Quarter: 2011Q1

REPORT INFORMATION
  Report Type: 
  Country: None (occurrence: None)
  Receive Date: 20110225
  Receipt Date: 20101027
  Transmission Date: 20110831
  Serious: No
  Sender: FDA-Public Use
  Company Number: 317465

PATIENT
  Age: 67 Year
  Sex: Male

DRUGS (2)
  1. VICTOZA [Suspect]
     Indication: TYPE 2 DIABETES MELLITUS
     Dosage: 0.6 MG, QD, SUBCUTANEOUS, 0.3 MG, QD, SUBCUTANEOUS
     Route: 058
     Dates: start: 20101022
  2. VICTOZA [Suspect]
     Indication: TYPE 2 DIABETES MELLITUS
     Dosage: 0.6 MG, QD, SUBCUTANEOUS, 0.3 MG, QD, SUBCUTANEOUS
     Route: 058
     Dates: start: 20101027

REACTIONS (5)
  - SINUS DISORDER [None]
  - INSOMNIA [None]
  - DYSPNOEA [None]
  - ABDOMINAL PAIN [None]
  - FLATULENCE [None]
